FAERS Safety Report 8729376 (Version 2)
Quarter: 2012Q4

REPORT INFORMATION
  Report Type: 
  Country: JP (occurrence: JP)
  Receive Date: 20120817
  Receipt Date: 20120905
  Transmission Date: 20130627
  Serious: Yes (Other)
  Sender: FDA-Public Use
  Company Number: JP-PFIZER INC-2012200790

PATIENT
  Age: 70 Year
  Sex: Male

DRUGS (3)
  1. ANCARON [Suspect]
     Indication: ATRIAL FIBRILLATION
     Dosage: 1.25 milligram/millilitre, unknown
     Route: 042
     Dates: start: 20120731, end: 20120731
  2. ANCARON [Suspect]
     Indication: CARDIAC FAILURE CONGESTIVE
     Dosage: 1.5 milligram/millilitre, unknown
     Route: 042
     Dates: start: 20120731, end: 20120731
  3. ANCARON [Suspect]
     Dosage: 1.5 milligram/millilitre, unknown
     Route: 042
     Dates: start: 20120731, end: 20120802

REACTIONS (1)
  - Blood bilirubin increased [Recovered/Resolved]
